FAERS Safety Report 23212979 (Version 2)
Quarter: 2024Q1

REPORT INFORMATION
  Report Type: Report from Study
  Country: US (occurrence: US)
  Receive Date: 20231121
  Receipt Date: 20240227
  Transmission Date: 20240409
  Serious: Yes (Other)
  Sender: FDA-Public Use
  Company Number: US-ABBVIE-5496198

PATIENT
  Sex: Female

DRUGS (1)
  1. RINVOQ [Suspect]
     Active Substance: UPADACITINIB
     Indication: Rheumatoid arthritis
     Route: 048
     Dates: start: 20200501

REACTIONS (4)
  - Knee arthroplasty [Recovering/Resolving]
  - Pain [Unknown]
  - Joint stiffness [Recovering/Resolving]
  - Post procedural complication [Recovering/Resolving]
